FAERS Safety Report 14588043 (Version 1)
Quarter: 2018Q1

REPORT INFORMATION
  Report Type: Report from Study
  Country: US (occurrence: US)
  Receive Date: 20180301
  Receipt Date: 20180301
  Transmission Date: 20180509
  Serious: Yes (Death, Hospitalization, Other)
  Sender: FDA-Public Use
  Company Number: US-JNJFOC-20171103761

PATIENT
  Age: 76 Year
  Sex: Male

DRUGS (39)
  1. METOPROLOL. [Concomitant]
     Active Substance: METOPROLOL
     Route: 048
     Dates: start: 20171018
  2. LIPITOR [Concomitant]
     Active Substance: ATORVASTATIN CALCIUM
     Indication: HYPERCHOLESTEROLAEMIA
     Route: 048
  3. ATARAX [Concomitant]
     Active Substance: HYDROXYZINE HYDROCHLORIDE
     Dosage: 10 MG, QD
     Route: 048
  4. LISINOPRIL. [Concomitant]
     Active Substance: LISINOPRIL
  5. PLAVIX [Concomitant]
     Active Substance: CLOPIDOGREL BISULFATE
     Route: 048
     Dates: start: 20171018
  6. METFORMIN [Concomitant]
     Active Substance: METFORMIN HYDROCHLORIDE
  7. LOVENOX [Concomitant]
     Active Substance: ENOXAPARIN SODIUM
     Dosage: 40 MG, Q AM
     Route: 058
     Dates: start: 20171018
  8. HYDROCHLOROTHIAZIDE. [Concomitant]
     Active Substance: HYDROCHLOROTHIAZIDE
  9. LASIX [Concomitant]
     Active Substance: FUROSEMIDE
     Route: 048
     Dates: start: 20171018
  10. CARVEDILOL. [Concomitant]
     Active Substance: CARVEDILOL
  11. VITAMIN D [Concomitant]
     Active Substance: CHOLECALCIFEROL
  12. WARFARIN [Concomitant]
     Active Substance: WARFARIN
  13. ZOFRAN [Concomitant]
     Active Substance: ONDANSETRON HYDROCHLORIDE
     Dosage: 4 MG/2 ML, PRN
     Route: 042
     Dates: start: 20171018
  14. KLOR-CON [Concomitant]
     Active Substance: POTASSIUM CHLORIDE
     Dosage: 20 MEQ, BID
  15. REQUIP [Concomitant]
     Active Substance: ROPINIROLE HYDROCHLORIDE
  16. TYLENOL [Concomitant]
     Active Substance: ACETAMINOPHEN
     Dosage: 650 MG, UNK
     Route: 048
     Dates: start: 20171018
  17. ASPIRIN. [Concomitant]
     Active Substance: ASPIRIN
  18. COLCHICINE. [Concomitant]
     Active Substance: COLCHICINE
  19. JANUVIA [Concomitant]
     Active Substance: SITAGLIPTIN PHOSPHATE
     Route: 048
  20. SUBLIMAZE [Concomitant]
     Active Substance: FENTANYL CITRATE
     Route: 042
     Dates: start: 20171018
  21. IMBRUVICA [Suspect]
     Active Substance: IBRUTINIB
     Indication: CHRONIC LYMPHOCYTIC LEUKAEMIA
     Route: 048
     Dates: start: 20160702
  22. FLAXSEED [Concomitant]
     Active Substance: FLAX SEED
  23. CORDARONE [Concomitant]
     Active Substance: AMIODARONE HYDROCHLORIDE
     Dates: start: 20171018, end: 20171018
  24. ULTRAM [Concomitant]
     Active Substance: TRAMADOL HYDROCHLORIDE
     Dosage: 1 DF, QID
     Route: 048
  25. PROTONIX [Concomitant]
     Active Substance: PANTOPRAZOLE SODIUM
     Route: 048
     Dates: start: 20171019
  26. VERSED [Concomitant]
     Active Substance: MIDAZOLAM HYDROCHLORIDE
     Route: 042
     Dates: start: 20171018
  27. IMBRUVICA [Suspect]
     Active Substance: IBRUTINIB
     Indication: CHRONIC LYMPHOCYTIC LEUKAEMIA
     Route: 048
     Dates: start: 20160705
  28. PRILOSEC [Concomitant]
     Active Substance: OMEPRAZOLE MAGNESIUM
  29. LUNESTA [Concomitant]
     Active Substance: ESZOPICLONE
  30. DULCOLAX NOS [Concomitant]
     Active Substance: BISACODYL OR DOCUSATE SODIUM
     Dosage: 650 MG, UNK
     Route: 048
     Dates: start: 20171018
  31. NORCO [Concomitant]
     Active Substance: ACETAMINOPHEN\HYDROCODONE BITARTRATE
     Route: 048
     Dates: start: 20171018
  32. LIDOCAINE. [Concomitant]
     Active Substance: LIDOCAINE
     Route: 042
     Dates: start: 20171018
  33. PRED FORT [Concomitant]
     Active Substance: PREDNISOLONE ACETATE
  34. PRONESTYL [Concomitant]
     Active Substance: PROCAINAMIDE HYDROCHLORIDE
     Route: 042
  35. CELEXA [Suspect]
     Active Substance: CITALOPRAM HYDROBROMIDE
     Indication: PRODUCT USED FOR UNKNOWN INDICATION
     Route: 065
  36. POTASSIUM [Concomitant]
     Active Substance: POTASSIUM
  37. MULTIVITAMINS [Concomitant]
     Active Substance: VITAMINS
     Route: 048
  38. FISH OIL [Concomitant]
     Active Substance: FISH OIL
     Route: 048
  39. POLYTRIM [Concomitant]
     Active Substance: POLYMYXIN B SULFATE\TRIMETHOPRIM SULFATE

REACTIONS (18)
  - Hyponatraemia [Unknown]
  - Gastric antral vascular ectasia [Unknown]
  - Disease progression [Fatal]
  - Pneumonia [Unknown]
  - Tremor [Recovering/Resolving]
  - Contusion [Unknown]
  - Nausea [Unknown]
  - Hyperkalaemia [Unknown]
  - Cataract [Unknown]
  - Soft tissue swelling [Unknown]
  - Ecchymosis [Unknown]
  - Cardiac failure acute [Unknown]
  - Ventricular tachycardia [Unknown]
  - Muscle twitching [Recovering/Resolving]
  - Arthralgia [Unknown]
  - Increased tendency to bruise [Unknown]
  - Atrial fibrillation [Unknown]
  - Back pain [Unknown]

NARRATIVE: CASE EVENT DATE: 2017
